FAERS Safety Report 9158358 (Version 1)
Quarter: 2013Q1

REPORT INFORMATION
  Report Type: Spontaneous
  Country: IT (occurrence: None)
  Receive Date: 20130211
  Receipt Date: 20130211
  Transmission Date: 20140127
  Serious: Yes (Hospitalization)
  Sender: FDA-Public Use
  Company Number: DSM-2013-00145

PATIENT
  Age: 73 Year
  Sex: Male

DRUGS (6)
  1. OLMESARTAN MEDOXOMIL [Suspect]
     Route: 048
     Dates: start: 20120101, end: 20121010
  2. AMLODIPINE [Suspect]
     Indication: HYPERTENSION
     Route: 048
     Dates: start: 20120101, end: 20121010
  3. AMLODIPINE [Suspect]
     Indication: HYPERTENSION
     Route: 048
     Dates: start: 20120101, end: 20121010
  4. AMLODIPINE [Suspect]
     Indication: HYPERTENSION
     Route: 048
     Dates: start: 20120101, end: 20121010
  5. TRIATEC [Suspect]
     Route: 048
     Dates: start: 20120101, end: 20121010
  6. IVABRADINE (IVABRADINE (IVABRADINE) [Concomitant]

REACTIONS (1)
  - Hypotension [None]
